FAERS Safety Report 9563965 (Version 2)
Quarter: 2013Q4

REPORT INFORMATION
  Report Type: Spontaneous
  Country: JP (occurrence: JP)
  Receive Date: 20130928
  Receipt Date: 20131216
  Transmission Date: 20140711
  Serious: Yes (Hospitalization)
  Sender: FDA-Public Use
  Company Number: JP-BAYER-2013-116678

PATIENT
  Age: 63 Year
  Sex: Male
  Weight: 73 kg

DRUGS (8)
  1. STIVARGA [Suspect]
     Indication: RECTAL CANCER
     Dosage: 160 MG, QD ON FOR 3 WEEKS AND OFF FOR 1 WEEK
     Route: 048
     Dates: start: 20130814, end: 20130920
  2. PAMILCON [Interacting]
     Indication: DIABETES MELLITUS
     Dosage: DAILY DOSE 2.5 MG
     Route: 048
     Dates: end: 201309
  3. OXYCONTIN [Concomitant]
     Dosage: DAILY DOSE 160 MG
     Route: 048
  4. NU-LOTAN [Concomitant]
     Dosage: DAILY DOSE 50 MG
     Route: 048
  5. MAGLAX [Concomitant]
     Dosage: DAILY DOSE 2000 MG
     Route: 048
  6. TAKEPRON [Concomitant]
     Dosage: DAILY DOSE 15 MG
     Route: 048
  7. NORVASC [Concomitant]
     Dosage: DAILY DOSE 5 MG
     Route: 048
  8. HOCHUUEKKITOU [Concomitant]
     Dosage: DAILY DOSE 7.5 MG
     Route: 048

REACTIONS (2)
  - Hypoglycaemia [Recovered/Resolved]
  - Drug interaction [None]
